FAERS Safety Report 13523351 (Version 1)
Quarter: 2017Q2

REPORT INFORMATION
  Report Type: Spontaneous
  Country: US (occurrence: US)
  Receive Date: 20170508
  Receipt Date: 20170508
  Transmission Date: 20170830
  Serious: No
  Sender: FDA-Public Use
  Company Number: US-VIFOR (INTERNATIONAL) INC.-VIT-2017-02865

PATIENT
  Sex: Male

DRUGS (11)
  1. HYDRALAZINE [Concomitant]
     Active Substance: HYDRALAZINE HYDROCHLORIDE
  2. GABAPENTIN. [Concomitant]
     Active Substance: GABAPENTIN
  3. NOVOLOG [Concomitant]
     Active Substance: INSULIN ASPART
  4. PANTOPRAZOLE [Concomitant]
     Active Substance: PANTOPRAZOLE
  5. TAMSULOSIN [Concomitant]
     Active Substance: TAMSULOSIN
  6. PRAVASTATIN. [Concomitant]
     Active Substance: PRAVASTATIN
  7. FENTANYL. [Concomitant]
     Active Substance: FENTANYL
  8. VELTASSA [Suspect]
     Active Substance: PATIROMER
     Indication: HYPERKALAEMIA
     Route: 048
     Dates: start: 20161109
  9. OXYCODONE [Concomitant]
     Active Substance: OXYCODONE
  10. LEVEMIR [Concomitant]
     Active Substance: INSULIN DETEMIR
  11. AMLODIPINE [Concomitant]
     Active Substance: AMLODIPINE BESYLATE

REACTIONS (1)
  - Abdominal distension [Not Recovered/Not Resolved]
